FAERS Safety Report 8101690-2 (Version None)
Quarter: 2012Q1

REPORT INFORMATION
  Report Type: 
  Country: None (occurrence: None)
  Receive Date: 20120129
  Receipt Date: 20111012
  Transmission Date: 20120608
  Serious: No
  Sender: FDA-Public Use
  Company Number: US-ABBOTT-11P-163-0863557-00

PATIENT
  Age: 48 Year
  Sex: Female

DRUGS (9)
  1. BYETTA [Concomitant]
     Indication: PRODUCT USED FOR UNKNOWN INDICATION
  2. LISINOPRIL [Concomitant]
     Indication: PRODUCT USED FOR UNKNOWN INDICATION
  3. ULTRAM [Concomitant]
     Indication: PRODUCT USED FOR UNKNOWN INDICATION
     Dosage: 1 IN THE MORNING AND AT NIGHT
  4. SIMVASTATIN [Concomitant]
     Indication: BLOOD CHOLESTEROL
     Route: 048
  5. CORGARD [Concomitant]
     Indication: BLOOD PRESSURE
     Route: 048
  6. OMEPRAZOLE [Concomitant]
     Indication: GASTROOESOPHAGEAL REFLUX DISEASE
  7. EFFEXOR XR [Concomitant]
     Indication: DEPRESSION
     Route: 048
  8. LEVEMIR [Concomitant]
     Indication: PRODUCT USED FOR UNKNOWN INDICATION
     Dosage: 100 UNITS IN AM AND 60 UNITS AT NIGHT DAILY
  9. HUMIRA [Suspect]
     Indication: PSORIASIS
     Dates: start: 20100601

REACTIONS (1)
  - PSORIASIS [None]
